FAERS Safety Report 19827504 (Version 1)
Quarter: 2021Q3

REPORT INFORMATION
  Report Type: Spontaneous
  Country: US (occurrence: US)
  Receive Date: 20210914
  Receipt Date: 20210914
  Transmission Date: 20211014
  Serious: No
  Sender: FDA-Public Use
  Company Number: US-ORGANON-O2108USA002080

PATIENT
  Age: 74 Year
  Sex: Female

DRUGS (1)
  1. DULERA [Suspect]
     Active Substance: FORMOTEROL FUMARATE DIHYDRATE\MOMETASONE FUROATE
     Dosage: 2 DOSAGE FORM, BID

REACTIONS (6)
  - Poor quality device used [Unknown]
  - Chest pain [Unknown]
  - Cough [Unknown]
  - Incorrect dose administered by device [Unknown]
  - Device malfunction [Unknown]
  - Therapeutic product effect decreased [Unknown]

NARRATIVE: CASE EVENT DATE: 2021
